FAERS Safety Report 9029076 (Version 1)
Quarter: 2013Q1

REPORT INFORMATION
  Report Type: Report from Study
  Country: DE (occurrence: DE)
  Receive Date: 20130122
  Receipt Date: 20130122
  Transmission Date: 20140127
  Serious: Yes (Death, Hospitalization)
  Sender: FDA-Public Use
  Company Number: DE-ROCHE-1179370

PATIENT
  Age: 67 Year
  Sex: Female
  Weight: 66 kg

DRUGS (7)
  1. TOCILIZUMAB [Suspect]
     Indication: RHEUMATOID ARTHRITIS
     Dosage: DATE OF LAST DOSE PRIOR TO SAE : 27/SEP/2012
     Route: 042
     Dates: start: 20120529
  2. ATACAND [Concomitant]
     Route: 065
     Dates: start: 20100901, end: 20121212
  3. ATACAND [Concomitant]
     Dosage: 8 MG/ 12.5 MG
     Route: 065
     Dates: start: 20121212, end: 20121223
  4. SIMVABETA [Concomitant]
     Route: 065
     Dates: start: 20090901, end: 20121223
  5. PANTOPRAZOL [Concomitant]
     Route: 065
     Dates: start: 20100901, end: 20121223
  6. ARAVA [Concomitant]
     Route: 065
     Dates: start: 20090901, end: 20121223
  7. LODOTRA [Concomitant]
     Route: 065
     Dates: start: 20090901, end: 20121223

REACTIONS (2)
  - Craniocerebral injury [Fatal]
  - Fall [Unknown]
